FAERS Safety Report 8803273 (Version 1)
Quarter: 2012Q4

REPORT INFORMATION
  Report Type: Report from Study
  Country: CA (occurrence: CA)
  Receive Date: 20120924
  Receipt Date: 20120924
  Transmission Date: 20130627
  Serious: Yes (Other)
  Sender: FDA-Public Use
  Company Number: CA-JNJFOC-20120905654

PATIENT
  Age: 28 Year
  Sex: Male
  Weight: 78 kg

DRUGS (6)
  1. REMICADE [Suspect]
     Indication: COLITIS ULCERATIVE
     Route: 042
     Dates: start: 20100924
  2. IMURAN [Concomitant]
     Dosage: 3 tablets once daily
     Route: 065
  3. SALOFALK [Concomitant]
     Route: 065
  4. VITAMIN D [Concomitant]
     Route: 065
  5. B12 [Concomitant]
     Route: 065
  6. ALL OTHER THERAPEUTICS [Concomitant]
     Route: 065

REACTIONS (4)
  - Tachycardia [Not Recovered/Not Resolved]
  - Diarrhoea [Not Recovered/Not Resolved]
  - Muscle spasms [Not Recovered/Not Resolved]
  - Pollakiuria [Not Recovered/Not Resolved]
